FAERS Safety Report 6253581-X (Version None)
Quarter: 2009Q3

REPORT INFORMATION
  Report Type: 
  Country: None (occurrence: None)
  Receive Date: 20090701
  Receipt Date: 20090619
  Transmission Date: 20100115
  Serious: Yes (Hospitalization)
  Sender: FDA-Public Use
  Company Number: DE-ELI_LILLY_AND_COMPANY-DE200906004544

PATIENT
  Sex: Female

DRUGS (2)
  1. ARICLAIM [Suspect]
     Indication: DIABETIC NEUROPATHY
     Dosage: 30 MG, DAILY (1/D)
     Route: 048
  2. ACTOS [Concomitant]

REACTIONS (3)
  - BLOOD ELECTROLYTES DECREASED [None]
  - NAUSEA [None]
  - VOMITING [None]
